FAERS Safety Report 5535818-5 (Version None)
Quarter: 2007Q4

REPORT INFORMATION
  Report Type: 
  Country: None (occurrence: None)
  Receive Date: 20071206
  Receipt Date: 20071204
  Transmission Date: 20080405
  Serious: Yes (Congenital Anomaly)
  Sender: FDA-Public Use
  Company Number: B0492627A

PATIENT

DRUGS (10)
  1. PAXIL [Suspect]
     Indication: DEPRESSION
     Dosage: 40MG PER DAY
     Dates: start: 20040327, end: 20041127
  2. PAXIL [Suspect]
     Dates: start: 20041128
  3. SERENACE [Suspect]
     Indication: SOMATOFORM DISORDER
     Dosage: 3MG TWICE PER DAY
     Dates: start: 20041113
  4. AKINETON [Suspect]
     Indication: SOMATOFORM DISORDER
     Dosage: 2MG TWICE PER DAY
     Dates: start: 20041113
  5. DEPAS [Suspect]
     Indication: SOMATOFORM DISORDER
     Dosage: 1.5MG THREE TIMES PER DAY
     Dates: start: 20040925
  6. NAUZELIN [Suspect]
     Indication: NAUSEA
     Dosage: 15MG THREE TIMES PER DAY
     Dates: start: 20041009, end: 20041106
  7. NAUZELIN [Suspect]
     Dosage: 10MG PER DAY
     Dates: start: 20041106
  8. LORAZEPAM [Concomitant]
  9. LULLAN [Concomitant]
     Indication: SOMATOFORM DISORDER
     Dosage: 4MG PER DAY
     Dates: start: 20040925, end: 20041009
  10. LULLAN [Concomitant]
     Dosage: 40MG PER DAY
     Dates: start: 20041009, end: 20041023

REACTIONS (8)
  - ABASIA [None]
  - ASTHENIA [None]
  - COORDINATION ABNORMAL [None]
  - DEVELOPMENTAL DELAY [None]
  - DRUG EXPOSURE DURING PREGNANCY [None]
  - LIMB MALFORMATION [None]
  - MENTAL DISORDER [None]
  - PSYCHOMOTOR SKILLS IMPAIRED [None]
